FAERS Safety Report 15586804 (Version 1)
Quarter: 2018Q4

REPORT INFORMATION
  Report Type: Spontaneous
  Country: US (occurrence: US)
  Receive Date: 20181105
  Receipt Date: 20181105
  Transmission Date: 20190205
  Serious: Yes (Other)
  Sender: FDA-Public Use
  Company Number: US-MYLANLABS-2018M1081908

PATIENT
  Age: 71 Year
  Sex: Female
  Weight: 82 kg

DRUGS (2)
  1. LORAZEPAM TABLETS USP [Suspect]
     Active Substance: LORAZEPAM
     Indication: ANXIETY
     Dosage: 1 DF, TID (AS NEEDED)
     Route: 048
  2. LORAZEPAM TABLETS USP [Suspect]
     Active Substance: LORAZEPAM
     Indication: NAUSEA

REACTIONS (4)
  - Somnolence [Not Recovered/Not Resolved]
  - Bladder cancer [Recovered/Resolved]
  - Lung neoplasm malignant [Recovered/Resolved]
  - Therapeutic response unexpected [Recovered/Resolved]
